FAERS Safety Report 16924117 (Version 1)
Quarter: 2019Q4

REPORT INFORMATION
  Report Type: Spontaneous
  Country: JP (occurrence: JP)
  Receive Date: 20191016
  Receipt Date: 20191016
  Transmission Date: 20200122
  Serious: Yes (Other)
  Sender: FDA-Public Use
  Company Number: JP-PFIZER INC-2019437388

PATIENT

DRUGS (1)
  1. VFEND [Suspect]
     Active Substance: VORICONAZOLE
     Indication: ENDOCARDITIS
     Dosage: UNK
     Route: 041

REACTIONS (2)
  - Volvulus [Unknown]
  - Short-bowel syndrome [Unknown]
